FAERS Safety Report 22259614 (Version 1)
Quarter: 2023Q2

REPORT INFORMATION
  Report Type: Spontaneous
  Country: US (occurrence: None)
  Receive Date: 20230425
  Receipt Date: 20230425
  Transmission Date: 20230721
  Serious: Yes (Hospitalization)
  Sender: FDA-Public Use
  Company Number: None

PATIENT
  Sex: Male

DRUGS (1)
  1. HUMIRA [Suspect]
     Active Substance: ADALIMUMAB
     Indication: Hidradenitis
     Dosage: OTHER QUANTITY : 2 PENS;?FREQUENCY : AS DIRECTED;?
     Route: 058
     Dates: start: 202304

REACTIONS (4)
  - Hidradenitis [None]
  - Condition aggravated [None]
  - Therapy interrupted [None]
  - Asthenia [None]
